FAERS Safety Report 12433109 (Version 1)
Quarter: 2016Q2

REPORT INFORMATION
  Report Type: Spontaneous
  Country: US (occurrence: US)
  Receive Date: 20160603
  Receipt Date: 20160603
  Transmission Date: 20160815
  Serious: Yes (Hospitalization, Disabling)
  Sender: FDA-Public Use
  Company Number: US-ENDO PHARMACEUTICALS INC.-2016-001715

PATIENT
  Age: 49 Year
  Sex: Male
  Weight: 83.99 kg

DRUGS (2)
  1. FORTESTA [Suspect]
     Active Substance: TESTOSTERONE
     Indication: ANDROGEN REPLACEMENT THERAPY
     Route: 061
     Dates: start: 20110603, end: 20120806
  2. ANDROGEL [Suspect]
     Active Substance: TESTOSTERONE
     Indication: ANDROGEN REPLACEMENT THERAPY
     Route: 065
     Dates: start: 20120608, end: 201307

REACTIONS (4)
  - Pulmonary embolism [Not Recovered/Not Resolved]
  - Pancreatitis [Unknown]
  - Gallbladder disorder [Unknown]
  - Post procedural bile leak [Unknown]

NARRATIVE: CASE EVENT DATE: 20121024
